FAERS Safety Report 9207326 (Version 2)
Quarter: 2013Q2

REPORT INFORMATION
  Report Type: Spontaneous
  Country: US (occurrence: None)
  Receive Date: 20120807
  Receipt Date: 20120911
  Transmission Date: 20140414
  Serious: No
  Sender: FDA-Public Use
  Company Number: CRC-12-356

PATIENT
  Age: 49 Year
  Sex: Female
  Weight: 67.13 kg

DRUGS (5)
  1. LIPODOX [Suspect]
     Indication: OVARIAN CANCER
     Route: 041
     Dates: start: 20120508
  2. ALOXI [Concomitant]
  3. BENADRYL [Concomitant]
  4. DECADRON [Concomitant]
  5. PEPCID [Concomitant]

REACTIONS (4)
  - Rash generalised [None]
  - Exfoliative rash [None]
  - Rash pruritic [None]
  - Skin discolouration [None]
